FAERS Safety Report 26107228 (Version 1)
Quarter: 2025Q4

REPORT INFORMATION
  Report Type: Spontaneous
  Country: EU (occurrence: EU)
  Receive Date: 20251201
  Receipt Date: 20251201
  Transmission Date: 20260117
  Serious: Yes (Hospitalization)
  Sender: SAMSUNG BIOEPIS
  Company Number: EU-SAMSUNG BIOEPIS-SB-2025-39410

PATIENT
  Age: 61 Year
  Sex: Male

DRUGS (2)
  1. IMRALDI [Suspect]
     Active Substance: ADALIMUMAB
     Indication: Axial spondyloarthritis
     Dates: start: 20240215
  2. ETORICOXIB [Concomitant]
     Active Substance: ETORICOXIB
     Indication: Product used for unknown indication
     Dosage: 5 DAYS PER WEEK;
     Dates: start: 20201103

REACTIONS (1)
  - Spinal osteoarthritis [Unknown]

NARRATIVE: CASE EVENT DATE: 20250101
